FAERS Safety Report 8508083-4 (Version None)
Quarter: 2012Q3

REPORT INFORMATION
  Report Type: 
  Country: None (occurrence: None)
  Receive Date: 20120709
  Receipt Date: 20120709
  Transmission Date: 20120928
  Serious: No
  Sender: FDA-Public Use
  Company Number: None

PATIENT

DRUGS (2)
  1. DILTIAZEM HYDROCHLORIDE [Suspect]
     Dosage: ORAL
     Route: 048
  2. SIMVASTATIN [Suspect]
     Dosage: ORAL
     Route: 048

REACTIONS (7)
  - MEDICATION ERROR [None]
  - RENAL FAILURE CHRONIC [None]
  - CONDITION AGGRAVATED [None]
  - ASTHENIA [None]
  - BLOOD CREATINE PHOSPHOKINASE INCREASED [None]
  - DRUG PRESCRIBING ERROR [None]
  - GAIT DISTURBANCE [None]
